FAERS Safety Report 5761491-7 (Version None)
Quarter: 2008Q2

REPORT INFORMATION
  Report Type: 
  Country: None (occurrence: None)
  Receive Date: 20080606
  Receipt Date: 20080530
  Transmission Date: 20081010
  Serious: Yes (Death, Hospitalization)
  Sender: FDA-Public Use
  Company Number: US-BOEHRINGER INGELHEIM GMBH, GERMANY-2008-BP-08723RO

PATIENT
  Age: 45 Year
  Sex: Male

DRUGS (25)
  1. AZATHIOPRINE [Suspect]
  2. CEFAZOLIN [Suspect]
  3. TACROLIMUS [Suspect]
  4. METHYLPREDNISOLONE [Suspect]
  5. TRIMETHOPRIM + SULFAMETHOXAZOLE [Suspect]
     Indication: INFECTION PROPHYLAXIS
  6. CLOTRIMAZOLE [Suspect]
  7. PROPOXYPHENE HYDROCHLORIDE [Concomitant]
     Indication: HEADACHE
  8. ACETAMINOPHEN [Concomitant]
     Indication: HEADACHE
  9. RED BLOOD CELLS [Concomitant]
     Indication: LABORATORY TEST ABNORMAL
  10. IMMUNE GLOBULIN (HUMAN) [Concomitant]
     Indication: LABORATORY TEST ABNORMAL
  11. METRONIDAZOLE HCL [Concomitant]
     Indication: CLOSTRIDIUM DIFFICILE TOXIN TEST POSITIVE
  12. VANCOMYCIN [Concomitant]
  13. AZTREONAM [Concomitant]
  14. CYCLOSPORINE [Concomitant]
  15. MYCOPHENOLATE MOTETIL [Concomitant]
  16. PREDNISONE TAB [Concomitant]
  17. PROPRANOLOL [Concomitant]
  18. OMEPRAZOLE [Concomitant]
  19. VITAMIN CAP [Concomitant]
  20. THIAMINE [Concomitant]
  21. FOLATE [Concomitant]
  22. ITRACONAZOLE [Concomitant]
  23. VALGANCICLOVIR HCL [Concomitant]
  24. AMPHOTERICIN B [Concomitant]
     Indication: MENINGITIS CRYPTOCOCCAL
  25. FLUCYTOSINE [Concomitant]
     Indication: MENINGITIS CRYPTOCOCCAL

REACTIONS (20)
  - ASCITES [None]
  - BACTERAEMIA [None]
  - CHILLS [None]
  - CLOSTRIDIUM DIFFICILE TOXIN TEST POSITIVE [None]
  - ELECTROENCEPHALOGRAM ABNORMAL [None]
  - FATIGUE [None]
  - GAIT DISTURBANCE [None]
  - HEADACHE [None]
  - HYDROCEPHALUS [None]
  - MENINGITIS CRYPTOCOCCAL [None]
  - MENTAL STATUS CHANGES [None]
  - MUSCULOSKELETAL STIFFNESS [None]
  - OLIGURIA [None]
  - PHOTOPHOBIA [None]
  - PLEURAL EFFUSION [None]
  - PYREXIA [None]
  - RENAL FAILURE [None]
  - SEPSIS [None]
  - SOMNOLENCE [None]
  - URINARY INCONTINENCE [None]
